FAERS Safety Report 7328366 (Version 3)
Quarter: 2014Q1

REPORT INFORMATION
  Report Type: Spontaneous
  Country: US (occurrence: US)
  Receive Date: 20100323
  Receipt Date: 20140128
  Transmission Date: 20141002
  Serious: Yes (Hospitalization, Other)
  Sender: FDA-Public Use
  Company Number: US-BAYER-201017021NA

PATIENT
  Age: 17 Year
  Sex: Female
  Weight: 117.91 kg

DRUGS (14)
  1. YAZ [Suspect]
     Indication: CONTRACEPTION
     Dosage: UNK UNK, QD
     Route: 048
     Dates: start: 200802, end: 200908
  2. YAZ [Suspect]
     Indication: ACNE
  3. YAZ [Suspect]
     Indication: PREMENSTRUAL SYNDROME
  4. EXCEDRIN MIGRAINE [Concomitant]
     Indication: MIGRAINE
  5. ZOLOFT [Concomitant]
  6. ALLEGRA [Concomitant]
  7. SERTRALINE [Concomitant]
  8. FEXOFENADINE [Concomitant]
  9. HYDROCODONE W/APAP [Concomitant]
  10. ACETAMINOPHEN W/CODEINE [Concomitant]
  11. METFORMIN [Concomitant]
  12. PAXIL [Concomitant]
  13. SEASONIQUE [Concomitant]
  14. LORCET [Concomitant]

REACTIONS (3)
  - Cholelithiasis [Unknown]
  - Cholecystitis acute [None]
  - Mental disorder [None]
